FAERS Safety Report 11365451 (Version 1)
Quarter: 2015Q3

REPORT INFORMATION
  Report Type: Report from Study
  Country: MX (occurrence: MX)
  Receive Date: 20150811
  Receipt Date: 20150811
  Transmission Date: 20151125
  Serious: Yes (Other)
  Sender: FDA-Public Use
  Company Number: PHHY2015MX095798

PATIENT
  Sex: Male

DRUGS (2)
  1. GALVUS MET [Suspect]
     Active Substance: METFORMIN HYDROCHLORIDE\VILDAGLIPTIN
     Indication: DIABETES MELLITUS
     Dosage: 2 DF, QD
     Route: 065
  2. EXFORGE [Suspect]
     Active Substance: AMLODIPINE BESYLATE\VALSARTAN
     Indication: HYPERTENSION
     Route: 065

REACTIONS (5)
  - Metastases to bone [Unknown]
  - Upper limb fracture [Unknown]
  - Renal cancer [Unknown]
  - Fall [Unknown]
  - Metastases to lung [Unknown]
